FAERS Safety Report 4388443-6 (Version None)
Quarter: 2004Q3

REPORT INFORMATION
  Report Type: 
  Country: None (occurrence: None)
  Receive Date: 20040701
  Receipt Date: 20040625
  Transmission Date: 20050211
  Serious: Yes (Death, Hospitalization)
  Sender: FDA-Public Use
  Company Number: PHNU2004DE02265

PATIENT
  Sex: Male

DRUGS (23)
  1. LEPONEX / CLOZARIL (CLOZAPINE) [Suspect]
     Indication: SCHIZOPHRENIA
     Dosage: 500 MG/DAY
     Route: 048
     Dates: end: 20010520
  2. LEPONEX / CLOZARIL (CLOZAPINE) [Suspect]
     Dosage: 300 MG/DAY
     Route: 048
     Dates: start: 20010521, end: 20010605
  3. TAXILAN [Concomitant]
     Dosage: 200 MG/DAY
     Route: 048
     Dates: end: 20010605
  4. AKINETON RETARD [Suspect]
     Dosage: 4 MG/DAY
     Route: 048
     Dates: end: 20010605
  5. SAROTEN [Suspect]
     Dosage: 10 MG/DAY
     Route: 048
     Dates: start: 20010601, end: 20010601
  6. SAROTEN [Suspect]
     Dosage: 30 MG/DAY
     Route: 048
     Dates: start: 20010602, end: 20010605
  7. HALDOL [Suspect]
     Dosage: 10 MG/DAY
     Route: 042
     Dates: start: 20010502, end: 20010605
  8. NEUROCIL [Suspect]
     Dosage: 50 MG/DAY
     Route: 048
     Dates: start: 20010426, end: 20010503
  9. NEUROCIL [Suspect]
     Dosage: 75 MG/DAY
     Route: 048
     Dates: start: 20010504, end: 20010603
  10. NEUROCIL [Suspect]
     Dosage: 50 MG/DAY
     Route: 048
     Dates: start: 20010604, end: 20010604
  11. TRUXAL [Suspect]
     Dosage: 160 MG/DAY
     Route: 048
     Dates: start: 20010427, end: 20010428
  12. TRUXAL [Suspect]
     Dosage: 190  MG/DAY
     Route: 048
     Dates: start: 20010429, end: 20010429
  13. TRUXAL [Suspect]
     Dosage: 250 MG/DAY
     Route: 048
     Dates: start: 20010430, end: 20010502
  14. TRUXAL [Suspect]
     Dosage: 200 MG/DAY
     Route: 048
     Dates: start: 20010503, end: 20010508
  15. TRUXAL [Suspect]
     Dosage: 160 MG/DAY
     Route: 048
     Dates: start: 20010509, end: 20010603
  16. TRUXAL [Suspect]
     Dosage: 50 MG/DAY
     Route: 048
     Dates: start: 20010604, end: 20010604
  17. GASTROZEPIN [Suspect]
     Indication: SALIVARY HYPERSECRETION
     Dosage: 150 MG/DAY
     Route: 048
     Dates: start: 20010430, end: 20010605
  18. ENALAPRIL MALEATE [Concomitant]
     Indication: HYPERTENSION
     Dosage: 20 MG/DAY
     Route: 048
     Dates: end: 20010605
  19. BELOC ZOK [Concomitant]
     Dosage: 47.5 MG/DAY
     Route: 048
     Dates: end: 20010605
  20. BIFITERAL ^PHILIPS^ [Concomitant]
     Dosage: 3 TABLESP./DAY
     Route: 048
     Dates: start: 20010514, end: 20010605
  21. UNAT COR [Concomitant]
     Dosage: 10 MG/DAY
     Route: 048
     Dates: start: 20010516, end: 20010605
  22. ADALAT [Concomitant]
     Indication: HYPERTENSION
     Dosage: 20 MG/DAY
     Route: 048
     Dates: start: 20010601, end: 20010601
  23. ADALAT [Concomitant]
     Dosage: 40 MG/DAY
     Route: 048
     Dates: start: 20010602, end: 20010605

REACTIONS (23)
  - ABDOMINAL DISTENSION [None]
  - ABDOMINAL OPERATION [None]
  - ABDOMINAL PAIN [None]
  - ACUTE ABDOMEN [None]
  - ANOREXIA [None]
  - ATRIOVENTRICULAR BLOCK [None]
  - BOWEL SOUNDS ABNORMAL [None]
  - CARDIAC PACEMAKER INSERTION [None]
  - DYSPEPSIA [None]
  - FLATULENCE [None]
  - HAEMATEMESIS [None]
  - ILEUS PARALYTIC [None]
  - LEUKOCYTOSIS [None]
  - MULTI-ORGAN FAILURE [None]
  - NAUSEA [None]
  - PNEUMONIA ASPIRATION [None]
  - PYREXIA [None]
  - RESPIRATORY RATE INCREASED [None]
  - SALIVARY HYPERSECRETION [None]
  - SEPSIS [None]
  - SOMNOLENCE [None]
  - VOMITING [None]
  - X-RAY GASTROINTESTINAL TRACT ABNORMAL [None]
